FAERS Safety Report 24228007 (Version 1)
Quarter: 2024Q3

REPORT INFORMATION
  Report Type: Spontaneous
  Country: CN (occurrence: CN)
  Receive Date: 20240820
  Receipt Date: 20240820
  Transmission Date: 20241017
  Serious: Yes (Hospitalization, Disabling, Other)
  Sender: BAYER
  Company Number: CN-BAYER-2024A118736

PATIENT
  Age: 43 Year
  Sex: Female
  Weight: 51.2 kg

DRUGS (2)
  1. MIRENA [Suspect]
     Active Substance: LEVONORGESTREL
     Indication: Uterine polyp
     Dosage: 20?G/DAY
     Route: 015
     Dates: start: 20231113, end: 20240812
  2. MIRENA [Suspect]
     Active Substance: LEVONORGESTREL
     Indication: Cervical polyp

REACTIONS (10)
  - Menstrual disorder [Recovering/Resolving]
  - Heavy menstrual bleeding [Recovering/Resolving]
  - Menstruation delayed [Recovering/Resolving]
  - Dizziness [Recovering/Resolving]
  - Asthenia [Recovering/Resolving]
  - Coital bleeding [None]
  - Respiratory rate increased [None]
  - Blood pressure diastolic increased [Recovered/Resolved]
  - Device use issue [None]
  - Off label use of device [None]

NARRATIVE: CASE EVENT DATE: 20231113
